FAERS Safety Report 4954388-3 (Version None)
Quarter: 2006Q1

REPORT INFORMATION
  Report Type: 
  Country: None (occurrence: None)
  Receive Date: 20060322
  Receipt Date: 20060310
  Transmission Date: 20060701
  Serious: Yes (Other)
  Sender: FDA-Public Use
  Company Number: 2006028783

PATIENT
  Age: 80 Year
  Sex: Female

DRUGS (9)
  1. LYRICA [Suspect]
     Indication: POST HERPETIC NEURALGIA
     Dosage: 150 MG (75 MG, 2 IN 1 D), ORAL
     Route: 048
     Dates: start: 20060210, end: 20060216
  2. ALL OTHER THERAPEUTIC PRODUCTS (ALL OTHER THERAPEUTIC PRODUCTS) [Concomitant]
  3. DIGOXIN [Concomitant]
  4. MARCUMAR [Concomitant]
  5. PANTOPRAZOLE SODIUM [Concomitant]
  6. DIAMICRON MR (GLICLAZIDE) [Concomitant]
  7. GLUCOPHAGE [Concomitant]
  8. FEMARA [Concomitant]
  9. PAROXETINE HYDROCHLORIDE [Concomitant]

REACTIONS (1)
  - HYPERTENSIVE CRISIS [None]
